FAERS Safety Report 22037295 (Version 7)
Quarter: 2024Q4

REPORT INFORMATION
  Report Type: Report from Study
  Country: CA (occurrence: CA)
  Receive Date: 20230226
  Receipt Date: 20241125
  Transmission Date: 20250115
  Serious: Yes (Hospitalization, Other)
  Sender: ABBVIE
  Company Number: CA-ABBVIE-4317507

PATIENT
  Age: 72 Year
  Sex: Male

DRUGS (7)
  1. LUPRON [Suspect]
     Active Substance: LEUPROLIDE ACETATE
     Indication: Prostate cancer
     Route: 030
     Dates: start: 20220817
  2. LUPRON [Suspect]
     Active Substance: LEUPROLIDE ACETATE
     Route: 030
  3. LUPRON [Suspect]
     Active Substance: LEUPROLIDE ACETATE
     Route: 030
  4. LUPRON [Suspect]
     Active Substance: LEUPROLIDE ACETATE
     Route: 030
  5. ACETAMINOPHEN [Concomitant]
     Active Substance: ACETAMINOPHEN
     Indication: Product used for unknown indication
     Route: 065
  6. ASPIRIN [Concomitant]
     Active Substance: ASPIRIN
     Indication: Product used for unknown indication
     Route: 065
  7. CELEBREX [Concomitant]
     Active Substance: CELECOXIB
     Indication: Product used for unknown indication
     Route: 065

REACTIONS (8)
  - Hip surgery [Unknown]
  - Urinary incontinence [Recovering/Resolving]
  - Renal failure [Unknown]
  - Haemorrhage [Recovering/Resolving]
  - Radiation injury [Recovering/Resolving]
  - Blood urine present [Recovering/Resolving]
  - Haemorrhage urinary tract [Recovering/Resolving]
  - Urinary cystectomy [Recovering/Resolving]

NARRATIVE: CASE EVENT DATE: 20230101
